FAERS Safety Report 9999637 (Version 1)
Quarter: 2014Q1

REPORT INFORMATION
  Report Type: Spontaneous
  Country: US (occurrence: US)
  Receive Date: 20140312
  Receipt Date: 20140312
  Transmission Date: 20141002
  Serious: Yes (Other)
  Sender: FDA-Public Use
  Company Number: US-BAYER-2014-034484

PATIENT
  Age: 84 Year
  Sex: Male

DRUGS (1)
  1. ALKA-SELTZER PLUS ORANGE ZEST COLD FORMULA [Suspect]
     Dosage: UNK
     Route: 048
     Dates: end: 201402

REACTIONS (6)
  - Hallucination [Not Recovered/Not Resolved]
  - Muscular weakness [Not Recovered/Not Resolved]
  - Tremor [Not Recovered/Not Resolved]
  - Dysuria [Not Recovered/Not Resolved]
  - Prostatomegaly [Not Recovered/Not Resolved]
  - Incorrect drug administration duration [None]
